FAERS Safety Report 9255187 (Version 2)
Quarter: 2013Q2

REPORT INFORMATION
  Report Type: Spontaneous
  Country: US (occurrence: US)
  Receive Date: 20130425
  Receipt Date: 20130425
  Transmission Date: 20140414
  Serious: No
  Sender: FDA-Public Use
  Company Number: US-MYLANLABS-2013S1001065

PATIENT
  Age: 83 Year
  Sex: Female

DRUGS (3)
  1. CLONIDINE TRANSDERMAL SYSTEM USP [Suspect]
     Indication: BLOOD PRESSURE INCREASED
     Dosage: CHANGE WEEKLY
     Route: 062
     Dates: start: 20130102, end: 20130113
  2. DIOVAN [Concomitant]
  3. INDAPAMIDE [Concomitant]

REACTIONS (3)
  - Headache [Recovered/Resolved]
  - Asthenia [Recovered/Resolved]
  - Pain [Recovered/Resolved]
